FAERS Safety Report 13683499 (Version 4)
Quarter: 2018Q2

REPORT INFORMATION
  Report Type: Spontaneous
  Country: JP (occurrence: JP)
  Receive Date: 20170623
  Receipt Date: 20180622
  Transmission Date: 20180711
  Serious: Yes (Other)
  Sender: FDA-Public Use
  Company Number: JP-JNJFOC-20170620367

PATIENT
  Sex: Male

DRUGS (1)
  1. ZYTIGA [Suspect]
     Active Substance: ABIRATERONE ACETATE
     Indication: HORMONE-REFRACTORY PROSTATE CANCER
     Route: 048

REACTIONS (7)
  - Oedema [Unknown]
  - Fatigue [Unknown]
  - Malaise [Unknown]
  - Drug ineffective [Unknown]
  - Hot flush [Unknown]
  - Decreased appetite [Unknown]
  - Hypertension [Unknown]
